FAERS Safety Report 7750694-8 (Version None)
Quarter: 2011Q3

REPORT INFORMATION
  Report Type: 
  Country: None (occurrence: None)
  Receive Date: 20110914
  Receipt Date: 20110912
  Transmission Date: 20111222
  Serious: Yes (Death, Hospitalization, Other)
  Sender: FDA-Public Use
  Company Number: FI-ABBOTT-11P-055-0731429-00

PATIENT
  Sex: Male

DRUGS (17)
  1. DIOVAN [Concomitant]
     Indication: BLOOD PRESSURE MANAGEMENT
  2. BISOPROLOL FUMARATE [Concomitant]
     Indication: PRODUCT USED FOR UNKNOWN INDICATION
  3. MOBIC [Concomitant]
     Indication: PRODUCT USED FOR UNKNOWN INDICATION
  4. POTASSIUM MEDICATION [Concomitant]
     Indication: PRODUCT USED FOR UNKNOWN INDICATION
     Dates: start: 20100101
  5. POTASSIUM CHLORIDE [Concomitant]
     Indication: PRODUCT USED FOR UNKNOWN INDICATION
  6. LERCANIDIPINE [Concomitant]
     Indication: PRODUCT USED FOR UNKNOWN INDICATION
  7. NEXIUM [Concomitant]
     Indication: GASTRIC DISORDER
  8. IMOVANE [Concomitant]
     Indication: PRODUCT USED FOR UNKNOWN INDICATION
  9. MELATONIN [Concomitant]
     Indication: PRODUCT USED FOR UNKNOWN INDICATION
  10. ANALGESICS [Concomitant]
     Indication: PRODUCT USED FOR UNKNOWN INDICATION
     Dosage: ABOUT 10 TABLETS PER YEAR
  11. HUMIRA [Suspect]
     Indication: RHEUMATOID ARTHRITIS
     Dates: start: 20090914, end: 20110201
  12. NEXIUM [Concomitant]
     Indication: PROPHYLAXIS
  13. ACETAMINOPHEN [Concomitant]
     Indication: PRODUCT USED FOR UNKNOWN INDICATION
  14. KALCIPOS-D [Concomitant]
     Indication: PRODUCT USED FOR UNKNOWN INDICATION
  15. PREDNISOLONE [Concomitant]
     Indication: PRODUCT USED FOR UNKNOWN INDICATION
  16. PRIMASPAN [Concomitant]
     Indication: PRODUCT USED FOR UNKNOWN INDICATION
  17. METHOTREXATE SODIUM [Concomitant]
     Indication: PRODUCT USED FOR UNKNOWN INDICATION
     Dates: start: 20090101, end: 20100106

REACTIONS (22)
  - VOMITING [None]
  - MYOCARDIAL INFARCTION [None]
  - DYSURIA [None]
  - INFLUENZA LIKE ILLNESS [None]
  - ANURIA [None]
  - VISION BLURRED [None]
  - BALANCE DISORDER [None]
  - ACIDOSIS [None]
  - LOSS OF CONSCIOUSNESS [None]
  - MULTI-ORGAN FAILURE [None]
  - TRANSIENT ISCHAEMIC ATTACK [None]
  - PYREXIA [None]
  - DEPRESSED LEVEL OF CONSCIOUSNESS [None]
  - FATIGUE [None]
  - SPEECH DISORDER [None]
  - CARDIOGENIC SHOCK [None]
  - MELAENA [None]
  - CEREBRAL HAEMORRHAGE [None]
  - BRADYCARDIA [None]
  - CEREBRAL ARTERY EMBOLISM [None]
  - MEDICAL DEVICE COMPLICATION [None]
  - HYPOKALAEMIA [None]
